FAERS Safety Report 7692028-3 (Version None)
Quarter: 2011Q3

REPORT INFORMATION
  Report Type: 
  Country: None (occurrence: None)
  Receive Date: 20110818
  Receipt Date: 20110810
  Transmission Date: 20111222
  Serious: Yes (Hospitalization)
  Sender: FDA-Public Use
  Company Number: JP-ASTRAZENECA-2011SE48814

PATIENT
  Age: 68 Year
  Sex: Female

DRUGS (7)
  1. ECARD COMBINATION [Suspect]
     Indication: HYPERTENSION
     Route: 048
     Dates: end: 20110810
  2. ALFAROL [Concomitant]
     Route: 048
  3. PANTOSIN [Concomitant]
     Route: 065
  4. DAIKENTYUTO [Concomitant]
     Route: 048
  5. FAMOTIDINE [Concomitant]
     Route: 065
  6. MEIACT [Concomitant]
     Route: 048
  7. EVISTA [Concomitant]
     Route: 048

REACTIONS (2)
  - ALTERED STATE OF CONSCIOUSNESS [None]
  - HYPONATRAEMIA [None]
